FAERS Safety Report 16961873 (Version 1)
Quarter: 2019Q4

REPORT INFORMATION
  Report Type: Spontaneous
  Country: US (occurrence: US)
  Receive Date: 20191025
  Receipt Date: 20191025
  Transmission Date: 20200122
  Serious: No
  Sender: FDA-Public Use
  Company Number: US-NOVOPROD-649481

PATIENT
  Age: 74 Year
  Sex: Female
  Weight: 56.7 kg

DRUGS (2)
  1. YUVAFEM [Suspect]
     Active Substance: ESTRADIOL HEMIHYDRATE
     Indication: VULVOVAGINAL PAIN
     Dosage: UNK
     Route: 067
     Dates: start: 201804
  2. GABAPENTIN. [Concomitant]
     Active Substance: GABAPENTIN
     Indication: VULVOVAGINAL PAIN
     Dosage: 300 MG, TID
     Route: 048
     Dates: start: 201801

REACTIONS (1)
  - Product use in unapproved indication [Unknown]
